FAERS Safety Report 4787752-6 (Version None)
Quarter: 2005Q3

REPORT INFORMATION
  Report Type: 
  Country: None (occurrence: None)
  Receive Date: 20050926
  Receipt Date: 20050816
  Transmission Date: 20060218
  Serious: Yes (Hospitalization)
  Sender: FDA-Public Use
  Company Number: 216768

PATIENT
  Age: 75 Year
  Sex: Female
  Weight: 96.6 kg

DRUGS (9)
  1. AVASTIN [Suspect]
     Indication: DRUG USE FOR UNKNOWN INDICATION
     Dosage: 5 MG/KG
  2. OXALIPLATIN (OXALIPLATIN) [Suspect]
     Indication: DRUG USE FOR UNKNOWN INDICATION
     Dosage: 180 MG, Q2W, INTRAVENOUS
     Route: 042
     Dates: start: 20050728
  3. FLUOROURACIL [Concomitant]
  4. LEUCOVORIN CALCIUM [Concomitant]
  5. ZOFRAN [Concomitant]
  6. DECADRON [Concomitant]
  7. CALCIUM GLUCONATE [Concomitant]
  8. MAGNESIUM SO4 (MAGNESIUM SULFATE) [Concomitant]
  9. COUMADIN [Concomitant]

REACTIONS (1)
  - PULMONARY EMBOLISM [None]
